FAERS Safety Report 4853073-6 (Version None)
Quarter: 2005Q4

REPORT INFORMATION
  Report Type: 
  Country: None (occurrence: None)
  Receive Date: 20051212
  Receipt Date: 20051118
  Transmission Date: 20060501
  Serious: Yes (Hospitalization, Other)
  Sender: FDA-Public Use
  Company Number: US_000643416

PATIENT
  Age: 43 Year
  Sex: Male
  Weight: 70.9 kg

DRUGS (4)
  1. HUMULIN R [Suspect]
     Indication: DIABETES MELLITUS INSULIN-DEPENDENT
     Dosage: 2/D, SUBCUTANEOUS
     Route: 058
  2. HUMULIN L [Suspect]
     Indication: DIABETES MELLITUS INSULIN-DEPENDENT
     Dosage: SEE IMAGE
     Route: 058
  3. INSULIN [Suspect]
     Indication: DIABETES MELLITUS INSULIN-DEPENDENT
  4. NEURONTIN [Concomitant]

REACTIONS (9)
  - BLINDNESS [None]
  - CEREBROVASCULAR ACCIDENT [None]
  - CONDITION AGGRAVATED [None]
  - CONVULSION [None]
  - DRUG INEFFECTIVE [None]
  - HYPERGLYCAEMIA [None]
  - LACUNAR INFARCTION [None]
  - MICROANGIOPATHY [None]
  - PHARMACEUTICAL PRODUCT COMPLAINT [None]
